FAERS Safety Report 17375812 (Version 1)
Quarter: 2020Q1

REPORT INFORMATION
  Report Type: Spontaneous
  Country: US (occurrence: US)
  Receive Date: 20200206
  Receipt Date: 20200206
  Transmission Date: 20200409
  Serious: Yes (Other)
  Sender: FDA-Public Use
  Company Number: US-ACCORD-170769

PATIENT
  Age: 50 Year
  Sex: Male
  Weight: 98.8 kg

DRUGS (3)
  1. DAPTOMYCIN ACCORD [Suspect]
     Active Substance: DAPTOMYCIN
     Indication: CELLULITIS
     Dosage: STRENGTH: 500 MG
     Route: 042
     Dates: start: 20200109, end: 20200109
  2. BACTRIM DS [Concomitant]
     Active Substance: SULFAMETHOXAZOLE\TRIMETHOPRIM
     Indication: ANTIBIOTIC THERAPY
     Dosage: TWICE DAILY (800-160 MG)
     Route: 048
     Dates: start: 20200106, end: 20200116
  3. AMOXICILLIN SODIUM/CLAVULANATE POTASSIUM [Concomitant]
     Active Substance: AMOXICILLIN\CLAVULANATE POTASSIUM
     Indication: ANTIBIOTIC THERAPY
     Dosage: TWICE DAILY (875-125 MG)
     Route: 048
     Dates: start: 20200106, end: 20200116

REACTIONS (3)
  - Chills [Recovered/Resolved]
  - Tremor [Unknown]
  - Feeling cold [Recovered/Resolved]

NARRATIVE: CASE EVENT DATE: 20200109
